FAERS Safety Report 13575034 (Version 1)
Quarter: 2017Q2

REPORT INFORMATION
  Report Type: Spontaneous
  Country: US (occurrence: US)
  Receive Date: 20170523
  Receipt Date: 20170523
  Transmission Date: 20170830
  Serious: No
  Sender: FDA-Public Use
  Company Number: US-BAUSCH-BL-2016-012256

PATIENT
  Age: 59 Year
  Sex: Female
  Weight: 133.48 kg

DRUGS (9)
  1. ATENOLOL. [Concomitant]
     Active Substance: ATENOLOL
     Indication: HYPERTENSION
  2. MYSOLINE [Suspect]
     Active Substance: PRIMIDONE
     Dosage: DECREASED THE DOSE TO ? OF THE DOSE
     Route: 048
     Dates: start: 2016
  3. MYSOLINE [Suspect]
     Active Substance: PRIMIDONE
     Dosage: DECREASED THE DOSE BY HALF
     Route: 048
     Dates: start: 2016
  4. TRAMADOL. [Concomitant]
     Active Substance: TRAMADOL
     Indication: MYALGIA
  5. LOVASTATIN. [Concomitant]
     Active Substance: LOVASTATIN
     Indication: HYPERLIPIDAEMIA
  6. MYSOLINE [Suspect]
     Active Substance: PRIMIDONE
     Indication: NEUROPATHY PERIPHERAL
     Route: 048
     Dates: start: 2016
  7. VENTOLIN [Concomitant]
     Active Substance: ALBUTEROL SULFATE
     Indication: CHRONIC OBSTRUCTIVE PULMONARY DISEASE
  8. BACLOFEN. [Concomitant]
     Active Substance: BACLOFEN
     Indication: MUSCLE SPASMS
  9. QVAR [Concomitant]
     Active Substance: BECLOMETHASONE DIPROPIONATE
     Indication: CHRONIC OBSTRUCTIVE PULMONARY DISEASE

REACTIONS (3)
  - Balance disorder [Recovered/Resolved]
  - Dizziness [Recovered/Resolved]
  - Feeling drunk [Recovered/Resolved]

NARRATIVE: CASE EVENT DATE: 2016
